FAERS Safety Report 12218787 (Version 2)
Quarter: 2016Q3

REPORT INFORMATION
  Report Type: Report from Study
  Country: BR (occurrence: BR)
  Receive Date: 20160329
  Receipt Date: 20160714
  Transmission Date: 20161109
  Serious: Yes (Hospitalization, Other)
  Sender: FDA-Public Use
  Company Number: PHHY2016BR034958

PATIENT
  Sex: Female
  Weight: 55 kg

DRUGS (9)
  1. SEEBRI BREEZHALER [Suspect]
     Active Substance: GLYCOPYRROLATE
     Indication: LUNG DISORDER
  2. AEROLIN [Concomitant]
     Active Substance: ALBUTEROL
     Indication: PRODUCT USED FOR UNKNOWN INDICATION
     Dosage: UNK
     Route: 065
  3. ONBREZ [Suspect]
     Active Substance: INDACATEROL
     Indication: BRONCHIAL DISORDER
     Dosage: 150 MG, Q12H
     Route: 055
  4. OXYGEN. [Concomitant]
     Active Substance: OXYGEN
     Indication: PRODUCT USED FOR UNKNOWN INDICATION
     Dosage: UNK
     Route: 065
     Dates: start: 201603
  5. BEROTEC [Concomitant]
     Active Substance: FENOTEROL HYDROBROMIDE
     Indication: PRODUCT USED FOR UNKNOWN INDICATION
     Dosage: UNK
     Route: 065
  6. SEEBRI BREEZHALER [Suspect]
     Active Substance: GLYCOPYRROLATE
     Indication: BRONCHIAL DISORDER
     Dosage: 1 DF, QD
     Route: 055
     Dates: start: 2016
  7. FORASEQ [Suspect]
     Active Substance: BUDESONIDE\FORMOTEROL FUMARATE
     Indication: BRONCHIAL DISORDER
     Dosage: 1 DF, Q12H (12UG FORMOTEROL FUMARATE, 400UG BUDESONIDE)
     Route: 055
     Dates: start: 2015
  8. PANTOPRAZOLE [Concomitant]
     Active Substance: PANTOPRAZOLE SODIUM
     Indication: PRODUCT USED FOR UNKNOWN INDICATION
     Dosage: UNK
     Route: 065
  9. FORASEQ [Suspect]
     Active Substance: BUDESONIDE\FORMOTEROL FUMARATE
     Indication: LUNG DISORDER

REACTIONS (10)
  - Weight decreased [Unknown]
  - Chest discomfort [Recovering/Resolving]
  - Inappropriate schedule of drug administration [Unknown]
  - Malaise [Unknown]
  - Influenza [Unknown]
  - Headache [Unknown]
  - Body height decreased [Unknown]
  - Product use issue [Unknown]
  - Bronchospasm [Unknown]
  - Rhinorrhoea [Recovering/Resolving]
